FAERS Safety Report 25675495 (Version 2)
Quarter: 2025Q4

REPORT INFORMATION
  Report Type: Spontaneous
  Country: US (occurrence: US)
  Receive Date: 20250813
  Receipt Date: 20251103
  Transmission Date: 20260117
  Serious: No
  Sender: STALLERGENES
  Company Number: US-STALCOR-2025-AER-02016

PATIENT
  Age: 7 Year
  Sex: Female

DRUGS (2)
  1. PALFORZIA [Suspect]
     Active Substance: PEANUT
     Indication: Food allergy
     Dosage: 300MG: MAINTENANCE: DISPENSED 05-APR-2025
     Route: 048
  2. PALFORZIA [Suspect]
     Active Substance: PEANUT
     Dosage: DOSE REDUCED TO LEVEL 7 AT 120MG
     Route: 048
     Dates: start: 202509

REACTIONS (3)
  - Gastroenteritis viral [Not Recovered/Not Resolved]
  - Adverse drug reaction [Unknown]
  - Product dose omission issue [Not Recovered/Not Resolved]
